FAERS Safety Report 4458115-8 (Version None)
Quarter: 2004Q3

REPORT INFORMATION
  Report Type: 
  Country: None (occurrence: None)
  Receive Date: 20040923
  Receipt Date: 20040923
  Transmission Date: 20050211
  Serious: No
  Sender: FDA-Public Use
  Company Number: None

PATIENT
  Age: 52 Year
  Sex: Female

DRUGS (1)
  1. ZOLOFT [Suspect]
     Dosage: TABLET

REACTIONS (3)
  - DIZZINESS [None]
  - HEART RATE INCREASED [None]
  - MEDICATION ERROR [None]
